FAERS Safety Report 8050641-8 (Version None)
Quarter: 2012Q1

REPORT INFORMATION
  Report Type: 
  Country: None (occurrence: None)
  Receive Date: 20120117
  Receipt Date: 20120117
  Transmission Date: 20120608
  Serious: Yes (Hospitalization)
  Sender: FDA-Public Use
  Company Number: None

PATIENT
  Age: 38 Year
  Sex: Female

DRUGS (3)
  1. INCIVEK [Concomitant]
  2. RIBASPHERE [Concomitant]
  3. PEGASYS [Suspect]
     Indication: HEPATITIS C
     Dosage: 180 MCG
     Route: 058
     Dates: start: 20111118, end: 20111215

REACTIONS (1)
  - ANAEMIA [None]
